FAERS Safety Report 4660141-0 (Version None)
Quarter: 2005Q2

REPORT INFORMATION
  Report Type: 
  Country: None (occurrence: None)
  Receive Date: 20050510
  Receipt Date: 20050427
  Transmission Date: 20051028
  Serious: Yes (Disabling, Other)
  Sender: FDA-Public Use
  Company Number: 2005067797

PATIENT
  Age: 41 Year
  Sex: Female

DRUGS (5)
  1. NEURONTIN [Suspect]
     Indication: INTERVERTEBRAL DISC PROTRUSION
     Dosage: 1200 MG (300 MG, 4 IN 1 D), ORAL
     Route: 048
     Dates: start: 19990101, end: 20050424
  2. NEURONTIN [Suspect]
     Indication: NERVE INJURY
     Dosage: 1200 MG (300 MG, 4 IN 1 D), ORAL
     Route: 048
     Dates: start: 19990101, end: 20050424
  3. ALL OTHER THERAPEUTIC PRODUCTS (ALL OTHER THERAPEUTIC PRODUCTS) [Suspect]
     Indication: INTERVERTEBRAL DISC PROTRUSION
  4. SERTALINE HYDROCHLORIDE (SERTRALINE HYDROCHLORIDE) [Concomitant]
  5. ZOLPIDEM TARTRATE [Concomitant]

REACTIONS (3)
  - ASEPTIC NECROSIS BONE [None]
  - HYPERTENSION [None]
  - MALAISE [None]
